FAERS Safety Report 8888963 (Version 1)
Quarter: 2012Q4

REPORT INFORMATION
  Report Type: 
  Country: PK (occurrence: PK)
  Receive Date: 20121106
  Receipt Date: 20121106
  Transmission Date: 20130627
  Serious: Yes (Life-Threatening, Hospitalization, Other)
  Sender: FDA-Public Use
  Company Number: PHHY2012PK100351

PATIENT
  Sex: Female
  Weight: 40 kg

DRUGS (1)
  1. ISONIAZID\PYRAZINAMIDE\RIFAMPIN [Suspect]
     Indication: PULMONARY TUBERCULOSIS
     Dosage: 2 DF daily
     Route: 048
     Dates: start: 20120920, end: 20121003

REACTIONS (1)
  - Hepatic encephalopathy [Recovering/Resolving]
